FAERS Safety Report 7792078-2 (Version None)
Quarter: 2011Q4

REPORT INFORMATION
  Report Type: 
  Country: None (occurrence: None)
  Receive Date: 20111003
  Receipt Date: 20110921
  Transmission Date: 20120403
  Serious: Yes (Other)
  Sender: FDA-Public Use
  Company Number: GB-NOVOPROD-335538

PATIENT
  Age: 22 Year
  Sex: Female

DRUGS (3)
  1. ACTRAPID [Suspect]
     Indication: DIABETIC KETOACIDOSIS
     Dosage: UNK
     Route: 042
     Dates: start: 20110912, end: 20110913
  2. NOVORAPID [Concomitant]
  3. INSULIN GLARGINE [Concomitant]

REACTIONS (2)
  - ANGIOEDEMA [None]
  - CHEST DISCOMFORT [None]
